FAERS Safety Report 23863460 (Version 1)
Quarter: 2024Q2

REPORT INFORMATION
  Report Type: Spontaneous
  Country: FR (occurrence: FR)
  Receive Date: 20240516
  Receipt Date: 20240516
  Transmission Date: 20240716
  Serious: Yes (Congenital Anomaly)
  Sender: FDA-Public Use
  Company Number: None

PATIENT
  Sex: Male

DRUGS (4)
  1. MIRTAZAPINE [Suspect]
     Active Substance: MIRTAZAPINE
     Indication: Personality disorder
     Route: 064
     Dates: start: 20231106
  2. PIPAMPERONE [Suspect]
     Active Substance: PIPAMPERONE
     Indication: Personality disorder
     Dosage: PIPAMPERONE (HYDROCHLORIDE)
     Route: 064
     Dates: start: 20231106
  3. TRIMEPRAZINE [Suspect]
     Active Substance: TRIMEPRAZINE
     Indication: Personality disorder
     Route: 064
     Dates: start: 20231106
  4. OLANZAPINE [Suspect]
     Active Substance: OLANZAPINE
     Indication: Personality disorder
     Route: 064
     Dates: start: 20240202

REACTIONS (2)
  - Encephalocele [Not Recovered/Not Resolved]
  - Maternal exposure during pregnancy [Not Recovered/Not Resolved]

NARRATIVE: CASE EVENT DATE: 20231106
